FAERS Safety Report 4673460-9 (Version None)
Quarter: 2005Q2

REPORT INFORMATION
  Report Type: 
  Country: None (occurrence: None)
  Receive Date: 20050523
  Receipt Date: 20050511
  Transmission Date: 20051028
  Serious: Yes (Hospitalization)
  Sender: FDA-Public Use
  Company Number: 2001-03-1139

PATIENT
  Age: 59 Year

DRUGS (2)
  1. INTRON A [Suspect]
     Indication: CHRONIC MYELOID LEUKAEMIA
     Dosage: 3-4.5MU/DAY UNKNOWN
     Route: 065
     Dates: start: 20010108, end: 20010310
  2. ESTROGEN [Concomitant]

REACTIONS (2)
  - ASEPTIC NECROSIS BONE [None]
  - DIARRHOEA [None]
